FAERS Safety Report 14157555 (Version 1)
Quarter: 2017Q4

REPORT INFORMATION
  Report Type: Report from Study
  Country: BR (occurrence: BR)
  Receive Date: 20171103
  Receipt Date: 20171103
  Transmission Date: 20180321
  Serious: Yes (Hospitalization)
  Sender: FDA-Public Use
  Company Number: PHHO2015BR003436

PATIENT
  Age: 56 Year
  Sex: Female
  Weight: 111 kg

DRUGS (1)
  1. ACZ885 [Suspect]
     Active Substance: CANAKINUMAB
     Indication: CARDIOVASCULAR EVENT PROPHYLAXIS
     Dosage: 300 MG, QUARTERLY
     Route: 058
     Dates: start: 20130620

REACTIONS (3)
  - Localised infection [Recovered/Resolved]
  - Staphylococcal infection [Recovered/Resolved]
  - Cellulitis [Recovered/Resolved]

NARRATIVE: CASE EVENT DATE: 20141230
